FAERS Safety Report 7751281-8 (Version None)
Quarter: 2011Q3

REPORT INFORMATION
  Report Type: 
  Country: None (occurrence: None)
  Receive Date: 20110914
  Receipt Date: 20110831
  Transmission Date: 20111222
  Serious: Yes (Hospitalization, Other)
  Sender: FDA-Public Use
  Company Number: JP-CEPHALON-2011004818

PATIENT
  Sex: Male
  Weight: 49 kg

DRUGS (10)
  1. RITUXIMAB [Suspect]
     Indication: SPLENIC MARGINAL ZONE LYMPHOMA
     Route: 042
     Dates: start: 20110405
  2. DONEPEZIL HYDROCHLORIDE [Concomitant]
  3. SULFAMETHOXAZOLE AND TRIMETHOPRIM [Concomitant]
  4. ASPIRIN [Concomitant]
  5. AMPHOTERICIN B [Concomitant]
     Dates: start: 20110202, end: 20110214
  6. VALGANCICLOVIR HYDROCHLORIDE (VALCYTE) [Concomitant]
     Dates: start: 20110216, end: 20110619
  7. RILMAZAFONE HYDROCHLORIDE [Concomitant]
     Dates: start: 20110128
  8. TREANDA [Suspect]
     Indication: SPLENIC MARGINAL ZONE LYMPHOMA
     Route: 042
     Dates: start: 20110124
  9. CLOPIDOGREL SULFATE [Concomitant]
  10. REBAMIPIDE [Concomitant]

REACTIONS (7)
  - LIVER DISORDER [None]
  - AGRANULOCYTOSIS [None]
  - PNEUMONIA [None]
  - SPUTUM INCREASED [None]
  - CD4 LYMPHOCYTES DECREASED [None]
  - PYREXIA [None]
  - BONE MARROW FAILURE [None]
